FAERS Safety Report 8713582 (Version 2)
Quarter: 2012Q4

REPORT INFORMATION
  Report Type: 
  Country: US (occurrence: US)
  Receive Date: 20120808
  Receipt Date: 20120907
  Transmission Date: 20130627
  Serious: No
  Sender: FDA-Public Use
  Company Number: US-ASTRAZENECA-2012SE53497

PATIENT
  Sex: Female
  Weight: 85.7 kg

DRUGS (2)
  1. PRILOSEC [Suspect]
     Indication: ABDOMINAL PAIN UPPER
     Route: 048
  2. PRILOSEC [Suspect]
     Indication: DYSPEPSIA
     Route: 048

REACTIONS (5)
  - Adverse event [Unknown]
  - Abdominal pain upper [Unknown]
  - Dyspepsia [Unknown]
  - Drug ineffective [Unknown]
  - Off label use [Unknown]
